FAERS Safety Report 9053328 (Version 2)
Quarter: 2015Q2

REPORT INFORMATION
  Report Type: Spontaneous
  Country: JP (occurrence: JP)
  Receive Date: 20130207
  Receipt Date: 20150515
  Transmission Date: 20150821
  Serious: Yes (Other)
  Sender: FDA-Public Use
  Company Number: PHHY2012JP075938

PATIENT
  Age: 40 Year
  Sex: Female

DRUGS (2)
  1. APRESOLINE HYDROCHLORIDE [Suspect]
     Active Substance: HYDRALAZINE HYDROCHLORIDE
     Indication: GESTATIONAL HYPERTENSION
     Route: 048
  2. METHYLDOPA. [Suspect]
     Active Substance: METHYLDOPA
     Indication: GESTATIONAL HYPERTENSION
     Dosage: 375 MG, QD
     Route: 065

REACTIONS (5)
  - Exposure during pregnancy [Unknown]
  - Peripartum cardiomyopathy [Unknown]
  - Orthopnoea [Unknown]
  - Dyspnoea [Unknown]
  - Acute pulmonary oedema [Unknown]
